FAERS Safety Report 5343208-3 (Version None)
Quarter: 2007Q2

REPORT INFORMATION
  Report Type: 
  Country: None (occurrence: None)
  Receive Date: 20070416
  Receipt Date: 20070201
  Transmission Date: 20071010
  Serious: No
  Sender: FDA-Public Use
  Company Number: 2007SP000378

PATIENT
  Age: 70 Year
  Sex: Female
  Weight: 52.1637 kg

DRUGS (7)
  1. LUNESTA [Suspect]
     Indication: INSOMNIA
     Dates: start: 20050101, end: 20060101
  2. LUNESTA [Suspect]
     Indication: INSOMNIA
     Dates: start: 20061101, end: 20070206
  3. LUNESTA [Suspect]
     Indication: INSOMNIA
     Dates: start: 20050101
  4. CORTICOSTEROID NOS [Suspect]
     Indication: SPINAL COLUMN STENOSIS
     Dosage: 1X;EPIDURAL
     Route: 008
     Dates: start: 20070202, end: 20070202
  5. ATIVAN [Concomitant]
  6. CLINORIL [Concomitant]
  7. FLEXERIL [Concomitant]

REACTIONS (2)
  - HEADACHE [None]
  - INSOMNIA [None]
